FAERS Safety Report 14395140 (Version 3)
Quarter: 2018Q3

REPORT INFORMATION
  Report Type: Report from Study
  Country: CN (occurrence: CN)
  Receive Date: 20180116
  Receipt Date: 20180917
  Transmission Date: 20181010
  Serious: Yes (Life-Threatening, Hospitalization)
  Sender: FDA-Public Use
  Company Number: CN-EISAI MEDICAL RESEARCH-EC-2018-034961

PATIENT
  Age: 49 Year
  Sex: Male
  Weight: 58 kg

DRUGS (16)
  1. PHLOROGLUCINOL [Concomitant]
     Active Substance: PHLOROGLUCINOL
  2. GLUTATHIONE [Concomitant]
     Active Substance: GLUTATHIONE
  3. METRONIDAZOLE SODIUM CHLORDE [Concomitant]
  4. MOSAPRIDE CITRATE [Concomitant]
     Active Substance: MOSAPRIDE CITRATE
  5. LENVATINIB [Suspect]
     Active Substance: LENVATINIB
     Indication: THYROID CANCER
     Route: 048
     Dates: start: 20170512, end: 20180108
  6. CIPROFLOXACIN LACTATE [Concomitant]
     Active Substance: CIPROFLOXACIN LACTATE
  7. SHENFU ZHUSHEYE/ZHIZHUKUANZHONG/ JINWEITAI JIAONANG/ YUAN HU ZHI TONG/ [Concomitant]
  8. LEVOFLOXACIN LACTATE [Concomitant]
     Active Substance: LEVOFLOXACIN LACTATE
  9. DICLOFENAC SODIUM. [Concomitant]
     Active Substance: DICLOFENAC SODIUM
  10. OCTREOTIDE ACETATE. [Concomitant]
     Active Substance: OCTREOTIDE ACETATE
  11. COMPOUNG DIGESTIVE ENZYME [Concomitant]
  12. MEDIUM?CHAIN AND LONG?CHAIN TRIGLYCERIDES LIPID EMULSION [Concomitant]
  13. LENVATINIB [Suspect]
     Active Substance: LENVATINIB
     Route: 048
     Dates: start: 20180117, end: 20180814
  14. SODIUM CHLORIDE. [Concomitant]
     Active Substance: SODIUM CHLORIDE
  15. OMEPRAZOLE. [Concomitant]
     Active Substance: OMEPRAZOLE
  16. DYCLONINE HYDROCHLORIDE MUCLAGE [Concomitant]

REACTIONS (2)
  - Cholecystitis [Recovered/Resolved]
  - Pancreatitis acute [Recovered/Resolved]

NARRATIVE: CASE EVENT DATE: 20180107
